FAERS Safety Report 10631010 (Version 2)
Quarter: 2014Q4

REPORT INFORMATION
  Report Type: Spontaneous
  Country: US (occurrence: US)
  Receive Date: 20141205
  Receipt Date: 20141205
  Transmission Date: 20150529
  Serious: Yes (Death, Hospitalization)
  Sender: FDA-Public Use
  Company Number: US-BRISTOL-MYERS SQUIBB COMPANY-21520903

PATIENT
  Age: 71 Year
  Sex: Male
  Weight: 85.5 kg

DRUGS (8)
  1. ULTRAM [Concomitant]
     Active Substance: TRAMADOL HYDROCHLORIDE
  2. VITAMIN B [Concomitant]
     Active Substance: VITAMIN B
  3. ZESTRIL [Concomitant]
     Active Substance: LISINOPRIL
  4. COREG [Concomitant]
     Active Substance: CARVEDILOL
  5. COLACE [Concomitant]
     Active Substance: DOCUSATE SODIUM
  6. PRILOSEC [Concomitant]
     Active Substance: OMEPRAZOLE MAGNESIUM
  7. ELIQUIS [Suspect]
     Active Substance: APIXABAN
     Indication: CEREBROVASCULAR ACCIDENT PROPHYLAXIS
     Route: 048
     Dates: start: 20141015, end: 20141017
  8. MIRALAX [Concomitant]
     Active Substance: POLYETHYLENE GLYCOL 3350

REACTIONS (1)
  - Cerebellar haemorrhage [Fatal]

NARRATIVE: CASE EVENT DATE: 20141017
